FAERS Safety Report 18458670 (Version 1)
Quarter: 2020Q4

REPORT INFORMATION
  Report Type: Report from Study
  Country: US (occurrence: US)
  Receive Date: 20201103
  Receipt Date: 20201103
  Transmission Date: 20210114
  Serious: No
  Sender: FDA-Public Use
  Company Number: US-IPSEN BIOPHARMACEUTICALS, INC.-2020-20800

PATIENT
  Sex: Female
  Weight: 28.9 kg

DRUGS (1)
  1. INCRELEX [Suspect]
     Active Substance: MECASERMIN
     Indication: SHORT STATURE
     Dosage: INCRELEX 40 MG (10 MG/ML)
     Route: 065
     Dates: start: 20191125

REACTIONS (1)
  - Anxiety [Unknown]
